FAERS Safety Report 12267103 (Version 1)
Quarter: 2016Q2

REPORT INFORMATION
  Report Type: Spontaneous
  Country: CN (occurrence: CN)
  Receive Date: 20160414
  Receipt Date: 20160414
  Transmission Date: 20160815
  Serious: Yes (Death, Other)
  Sender: FDA-Public Use
  Company Number: CN-SUN PHARMACEUTICAL INDUSTRIES LTD-2016R1-114785

PATIENT
  Age: 71 Year
  Sex: Female

DRUGS (4)
  1. DEXAMETHASONE. [Suspect]
     Active Substance: DEXAMETHASONE
     Indication: DIFFUSE LARGE B-CELL LYMPHOMA
     Dosage: EVERY 21 DAYS FOR 6 CYCLES
     Route: 065
  2. CYCLOPHOSPHAMIDE. [Suspect]
     Active Substance: CYCLOPHOSPHAMIDE
     Indication: DIFFUSE LARGE B-CELL LYMPHOMA
     Dosage: EVERY 21 DAYS FOR 6 CYCLES
     Route: 065
  3. PIRARUBICIN [Suspect]
     Active Substance: PIRARUBICIN
     Indication: DIFFUSE LARGE B-CELL LYMPHOMA
     Dosage: EVERY 21 DAYS FOR 6 CYCLES
     Route: 065
  4. VINDESINE [Suspect]
     Active Substance: VINDESINE
     Indication: DIFFUSE LARGE B-CELL LYMPHOMA
     Dosage: EVERY 21 DAYS FOR 6 CYCLES
     Route: 065

REACTIONS (2)
  - Death [Fatal]
  - Disease progression [Unknown]
